FAERS Safety Report 8321317-4 (Version None)
Quarter: 2012Q2

REPORT INFORMATION
  Report Type: 
  Country: None (occurrence: None)
  Receive Date: 20120430
  Receipt Date: 20120424
  Transmission Date: 20120825
  Serious: Yes (Hospitalization)
  Sender: FDA-Public Use
  Company Number: US-JNJFOC-20120312374

PATIENT
  Sex: Male
  Weight: 181.44 kg

DRUGS (22)
  1. DURAGESIC-100 [Suspect]
     Route: 062
  2. DURAGESIC-100 [Suspect]
     Route: 062
  3. DURAGESIC-100 [Suspect]
     Route: 062
  4. CEPHALEXIN [Suspect]
     Indication: PRODUCT USED FOR UNKNOWN INDICATION
     Route: 065
  5. CARTIA XT [Concomitant]
     Indication: HYPERTENSION
     Route: 048
  6. SIMAVASTATIN [Concomitant]
     Indication: BLOOD CHOLESTEROL
     Route: 048
  7. HYDROCODONE [Concomitant]
     Indication: PAIN
     Dosage: 7.5/750 EVERY 4 AS NEEDED
     Route: 048
  8. DURAGESIC-100 [Suspect]
  9. CYMBALTA [Concomitant]
     Route: 048
  10. METFORMIN HCL [Concomitant]
     Indication: DIABETES MELLITUS
     Route: 048
  11. BACLOFEN [Concomitant]
     Indication: PAIN
     Route: 048
  12. DURAGESIC-100 [Suspect]
     Route: 062
  13. TOPAMAX [Concomitant]
     Indication: TREMOR
     Route: 048
  14. LISINOPRIL [Concomitant]
     Route: 048
  15. DURAGESIC-100 [Suspect]
     Indication: NERVE INJURY
     Route: 062
  16. KEFLEX [Suspect]
     Indication: PRODUCT USED FOR UNKNOWN INDICATION
     Route: 048
     Dates: start: 20080101, end: 20080101
  17. TOPAMAX [Concomitant]
     Indication: PAIN
     Route: 048
  18. CELEBREX [Concomitant]
     Indication: ARTHRITIS
     Route: 048
  19. FUROSEMIDE [Concomitant]
     Route: 048
  20. PREVACID [Concomitant]
     Indication: GASTROOESOPHAGEAL REFLUX DISEASE
     Route: 048
  21. SINGULAIR [Concomitant]
     Indication: ASTHMA
     Route: 048
  22. WARFARIN SODIUM [Concomitant]
     Route: 048

REACTIONS (10)
  - ADVERSE DRUG REACTION [None]
  - JOINT INJURY [None]
  - VIRAL PERICARDITIS [None]
  - TREMOR [None]
  - INTENTIONAL DRUG MISUSE [None]
  - DRUG HYPERSENSITIVITY [None]
  - INADEQUATE ANALGESIA [None]
  - WITHDRAWAL SYNDROME [None]
  - NEURALGIA [None]
  - STAPHYLOCOCCAL INFECTION [None]
